FAERS Safety Report 7844859-4 (Version None)
Quarter: 2011Q4

REPORT INFORMATION
  Report Type: 
  Country: None (occurrence: None)
  Receive Date: 20111025
  Receipt Date: 20111017
  Transmission Date: 20120403
  Serious: Yes (Other)
  Sender: FDA-Public Use
  Company Number: JP-GLAXOSMITHKLINE-B0757093A

PATIENT
  Sex: Female

DRUGS (3)
  1. LAMICTAL [Suspect]
     Dosage: 200MG PER DAY
     Route: 048
  2. LITHIUM CARBONATE [Concomitant]
     Indication: BIPOLAR DISORDER
     Route: 048
  3. LAMICTAL [Suspect]
     Indication: BIPOLAR DISORDER
     Dosage: 50MG PER DAY
     Route: 048

REACTIONS (8)
  - HEPATIC FUNCTION ABNORMAL [None]
  - PRURITUS [None]
  - BLISTER [None]
  - CHEILITIS [None]
  - RASH GENERALISED [None]
  - STOMATITIS [None]
  - PYREXIA [None]
  - DRUG RASH WITH EOSINOPHILIA AND SYSTEMIC SYMPTOMS [None]
